FAERS Safety Report 20091781 (Version 1)
Quarter: 2021Q4

REPORT INFORMATION
  Report Type: Spontaneous
  Country: US (occurrence: US)
  Receive Date: 20211119
  Receipt Date: 20211119
  Transmission Date: 20220303
  Serious: No
  Sender: FDA-Public Use
  Company Number: US-BAYER-2021A250988

PATIENT
  Age: 49 Year
  Sex: Female

DRUGS (1)
  1. KYLEENA [Suspect]
     Active Substance: LEVONORGESTREL
     Indication: Heavy menstrual bleeding
     Dosage: 17.5?G/DAY
     Route: 015
     Dates: start: 20211016

REACTIONS (5)
  - Nausea [None]
  - Weight decreased [None]
  - Vaginal haemorrhage [Recovered/Resolved]
  - Off label use of device [None]
  - Device use issue [None]

NARRATIVE: CASE EVENT DATE: 20211016
